FAERS Safety Report 8836709 (Version 2)
Quarter: 2013Q1

REPORT INFORMATION
  Report Type: Spontaneous
  Country: JP (occurrence: None)
  Receive Date: 20121010
  Receipt Date: 20121031
  Transmission Date: 20140127
  Serious: Yes (Hospitalization)
  Sender: FDA-Public Use
  Company Number: JP-2012-3357

PATIENT
  Age: 42 Year
  Sex: Female

DRUGS (15)
  1. NAVELBINE_VINORELBINE TARTRATE 50.00 MG_SOLUTION FOR INJECTION_VIAL, G [Suspect]
     Indication: BREAST CANCER
     Route: 042
     Dates: start: 20120710, end: 20120904
  2. AFATINIB [Suspect]
     Route: 048
     Dates: start: 20120710, end: 20120904
  3. DECADRON [Suspect]
     Dosage: 1.5 MG, PER CHEMO, REGIM, ORAL
     Route: 048
     Dates: start: 20120830, end: 20120905
  4. MAGMITT (MAGNESIUM OXIDE) [Concomitant]
  5. NORITREN (NORTRIPTYLINE HYDROCHLORIDE) [Concomitant]
  6. TAKEPRON (LANSOPRAZOLE) [Concomitant]
  7. LYRICA (PREGABALIN) [Concomitant]
  8. CEPHADOL (DIFENIDOL HYDROCHLORIDE) [Concomitant]
  9. MORPHINE HYDROCHLORIDE (MORPHINE HYDROCHLORIDE) [Concomitant]
  10. POSTERISAN   /00521801/ (ESCHERICHIA COLI, LYOPHILIZED, PHENOL) [Concomitant]
  11. ZYPREXA (OLANZAPINE) [Concomitant]
  12. HIRUDOID  /00723701/ (HEPARINOID) [Concomitant]
  13. INSIDE  /00550802/ (RANITIDINE HYDROCHLORIDE) [Concomitant]
  14. SYLOEIC (ALLOPURINOL) [Concomitant]
  15. AZUNOL  /00317302/ (SODIUM GUALENATE) [Concomitant]

REACTIONS (3)
  - Pulmonary embolism [None]
  - Pneumonia [None]
  - Hypoaesthesia [None]
